FAERS Safety Report 10111342 (Version 2)
Quarter: 2014Q2

REPORT INFORMATION
  Report Type: Spontaneous
  Country: US (occurrence: US)
  Receive Date: 20140425
  Receipt Date: 20140610
  Transmission Date: 20141212
  Serious: Yes (Hospitalization)
  Sender: FDA-Public Use
  Company Number: US-JNJFOC-20140413843

PATIENT
  Age: 74 Year
  Sex: Male
  Weight: 73.6 kg

DRUGS (6)
  1. XARELTO [Suspect]
     Indication: THROMBOSIS PROPHYLAXIS
     Route: 048
     Dates: start: 20131015, end: 20131018
  2. XARELTO [Suspect]
     Indication: KNEE ARTHROPLASTY
     Route: 048
     Dates: start: 20131015, end: 20131018
  3. ZOCOR [Concomitant]
     Route: 048
     Dates: start: 20131015
  4. ULTRAM [Concomitant]
     Route: 048
     Dates: start: 20131015
  5. CELECOXIB [Concomitant]
     Route: 048
     Dates: start: 20131015
  6. PROSCAR [Concomitant]
     Route: 048
     Dates: start: 20131015

REACTIONS (2)
  - Pulmonary embolism [Unknown]
  - International normalised ratio increased [Unknown]
